FAERS Safety Report 15250524 (Version 1)
Quarter: 2018Q3

REPORT INFORMATION
  Report Type: Spontaneous
  Country: US (occurrence: US)
  Receive Date: 20180716
  Receipt Date: 20180716
  Transmission Date: 20181010
  Serious: No
  Sender: FDA-Public Use
  Company Number: None

PATIENT
  Age: 57 Year
  Sex: Female

DRUGS (1)
  1. OCALIVA [Suspect]
     Active Substance: OBETICHOLIC ACID
     Indication: PRIMARY BILIARY CHOLANGITIS
     Route: 048
     Dates: start: 20171031

REACTIONS (5)
  - Pruritus [None]
  - Blood cholesterol increased [None]
  - Drug dose omission [None]
  - Arthralgia [None]
  - Dry mouth [None]

NARRATIVE: CASE EVENT DATE: 20180714
